FAERS Safety Report 9296486 (Version 2)
Quarter: 2013Q2

REPORT INFORMATION
  Report Type: Spontaneous
  Country: GB (occurrence: GB)
  Receive Date: 20130517
  Receipt Date: 20130613
  Transmission Date: 20140414
  Serious: Yes (Other)
  Sender: FDA-Public Use
  Company Number: GB-ABBOTT-13P-167-1062220-00

PATIENT
  Age: 33 Year
  Sex: Female

DRUGS (2)
  1. HUMIRA [Suspect]
     Indication: CROHN^S DISEASE
     Route: 058
     Dates: start: 20101006, end: 201209
  2. HUMIRA [Suspect]
     Route: 058
     Dates: start: 201210

REACTIONS (3)
  - Abortion spontaneous [Unknown]
  - Haemorrhage [Unknown]
  - Anaemia [Unknown]
